FAERS Safety Report 23407454 (Version 1)
Quarter: 2024Q1

REPORT INFORMATION
  Report Type: Report from Study
  Country: US (occurrence: US)
  Receive Date: 20240117
  Receipt Date: 20240117
  Transmission Date: 20240410
  Serious: Yes (Other)
  Sender: FDA-Public Use
  Company Number: US-ABBVIE-5587671

PATIENT
  Sex: Male

DRUGS (4)
  1. SKYRIZI [Suspect]
     Active Substance: RISANKIZUMAB-RZAA
     Indication: Crohn^s disease
     Dosage: FORM STRENGTH: 360 MG?FREQUENCY TEXT: WEEK 12
     Route: 058
     Dates: start: 20231221
  2. SKYRIZI [Suspect]
     Active Substance: RISANKIZUMAB-RZAA
     Indication: Crohn^s disease
     Dosage: FORM STRENGTH: 600 MG?FREQUENCY TEXT: WEEK 0?LAST ADMIN DATE 2023
     Route: 042
     Dates: start: 20230815
  3. SKYRIZI [Suspect]
     Active Substance: RISANKIZUMAB-RZAA
     Indication: Crohn^s disease
     Dosage: FORM STRENGTH: 600 MG?FREQUENCY TEXT: WEEK 8?LAST ADMIN DATE 2023?STOP DATE TEXT: MAINTANCE DOSE
     Route: 042
     Dates: start: 20231113
  4. SKYRIZI [Suspect]
     Active Substance: RISANKIZUMAB-RZAA
     Indication: Crohn^s disease
     Dosage: FORM STRENGTH: 600 MG?FREQUENCY TEXT: WEEK 4?LAST ADMIN DATE 2023
     Route: 042
     Dates: start: 20231010

REACTIONS (3)
  - Surgery [Unknown]
  - Crohn^s disease [Unknown]
  - Inflammation [Unknown]

NARRATIVE: CASE EVENT DATE: 20230101
